FAERS Safety Report 24697473 (Version 4)
Quarter: 2024Q4

REPORT INFORMATION
  Report Type: Spontaneous
  Country: US (occurrence: US)
  Receive Date: 20241204
  Receipt Date: 20241219
  Transmission Date: 20250114
  Serious: Yes (Hospitalization, Other)
  Sender: GILEAD
  Company Number: US-GILEAD-2024-0695803

PATIENT
  Age: 72 Year
  Sex: Male
  Weight: 123 kg

DRUGS (1)
  1. TRODELVY [Suspect]
     Active Substance: SACITUZUMAB GOVITECAN-HZIY
     Indication: Bladder cancer
     Dosage: 1100 MG
     Route: 042
     Dates: start: 20241106, end: 20241114

REACTIONS (8)
  - Acute kidney injury [Recovered/Resolved]
  - Ileus [Unknown]
  - Bacteraemia [Recovered/Resolved]
  - Electrolyte imbalance [Not Recovered/Not Resolved]
  - Sepsis [Not Recovered/Not Resolved]
  - Diarrhoea [Not Recovered/Not Resolved]
  - Neutropenia [Not Recovered/Not Resolved]
  - Product use in unapproved indication [Unknown]

NARRATIVE: CASE EVENT DATE: 20241113
